FAERS Safety Report 5215006-2 (Version None)
Quarter: 2007Q1

REPORT INFORMATION
  Report Type: 
  Country: None (occurrence: None)
  Receive Date: 20070117
  Receipt Date: 20070109
  Transmission Date: 20070707
  Serious: Yes (Hospitalization)
  Sender: FDA-Public Use
  Company Number: GXKR2007GB00617

PATIENT
  Age: 21 Year
  Sex: Female

DRUGS (2)
  1. METRONIDAZOLE [Suspect]
     Dosage: 400 MG, TID, ORAL
     Route: 048
     Dates: end: 20061109
  2. CONTACEPTIVES (CONTRACEPTIVES) [Concomitant]

REACTIONS (2)
  - RASH [None]
  - SWELLING FACE [None]
